FAERS Safety Report 24777237 (Version 1)
Quarter: 2024Q4

REPORT INFORMATION
  Report Type: Spontaneous
  Country: BR (occurrence: BR)
  Receive Date: 20241226
  Receipt Date: 20241226
  Transmission Date: 20250115
  Serious: Yes (Hospitalization, Other)
  Sender: BAYER HEALTHCARE PHARMACEUTICALS INC.
  Company Number: BR-BAYER-2024A179503

PATIENT
  Age: 35 Year
  Sex: Female

DRUGS (1)
  1. MIRENA [Suspect]
     Active Substance: LEVONORGESTREL
     Indication: Endometriosis
     Dosage: 20?G/DAY
     Route: 015
     Dates: start: 20241113

REACTIONS (4)
  - Haemangioma of skin [None]
  - Oral disorder [Not Recovered/Not Resolved]
  - Orbital swelling [Recovered/Resolved with Sequelae]
  - Product use in unapproved indication [None]

NARRATIVE: CASE EVENT DATE: 20241113
